FAERS Safety Report 16147265 (Version 1)
Quarter: 2019Q2

REPORT INFORMATION
  Report Type: Report from Study
  Country: IT (occurrence: IT)
  Receive Date: 20190402
  Receipt Date: 20190402
  Transmission Date: 20190711
  Serious: Yes (Other)
  Sender: FDA-Public Use
  Company Number: IT-TEVA-2019-IT-1031272

PATIENT
  Age: 92 Year
  Sex: Female

DRUGS (7)
  1. CLOPIXOL 20 MG/ML GOCCE ORALI, SOLUZIONE [Suspect]
     Active Substance: ZUCLOPENTHIXOL HYDROCHLORIDE
     Indication: SENILE DEMENTIA
     Dosage: 10 GTT DAILY;
     Route: 048
     Dates: start: 20181101, end: 20190208
  2. NORVASC [Concomitant]
     Active Substance: AMLODIPINE BESYLATE
  3. TRAJENTA 5MG FILM-COATED TABLETS [Concomitant]
     Active Substance: LINAGLIPTIN
  4. LANTUS [Concomitant]
     Active Substance: INSULIN GLARGINE
  5. QUETIAPINE FUMARATE. [Suspect]
     Active Substance: QUETIAPINE FUMARATE
     Indication: SENILE DEMENTIA
     Dosage: 50 MILLIGRAM DAILY;
     Route: 048
     Dates: start: 20181101, end: 20190208
  6. CARDIOASPIRIN 100 MG COMPRESSE GASTRORESISTENTI [Concomitant]
     Active Substance: ASPIRIN
  7. PANTOPRAZOLE [Concomitant]
     Active Substance: PANTOPRAZOLE

REACTIONS (5)
  - Fall [Recovering/Resolving]
  - Aphasia [Recovering/Resolving]
  - Dysarthria [Recovering/Resolving]
  - Altered state of consciousness [Recovering/Resolving]
  - Asthenia [Recovering/Resolving]

NARRATIVE: CASE EVENT DATE: 20190208
